FAERS Safety Report 8543704 (Version 3)
Quarter: 2012Q4

REPORT INFORMATION
  Report Type: Report from Study
  Country: CA (occurrence: CA)
  Receive Date: 20120503
  Receipt Date: 20121024
  Transmission Date: 20130627
  Serious: Yes (Hospitalization)
  Sender: FDA-Public Use
  Company Number: CA-CELGENEUS-028-CCAZA-12042245

PATIENT
  Age: 75 Year
  Sex: Male

DRUGS (23)
  1. AZACITIDINE INJECTABLE [Suspect]
     Indication: ACUTE MYELOID LEUKEMIA
     Dosage: 75 milligram/sq. meter
     Route: 058
     Dates: start: 20120330, end: 20120405
  2. NITRO PATCH [Concomitant]
     Indication: DRUG USE FOR UNKNOWN INDICATION
     Dosage: .6 Milligram
     Route: 065
  3. ALENDRONATE SODIUM [Concomitant]
     Indication: DRUG USE FOR UNKNOWN INDICATION
     Dosage: 70 Milligram
     Route: 065
  4. PREDNISONE [Concomitant]
     Indication: RHEUMATOID ARTHRITIS
     Dosage: 25 Milligram
     Route: 048
  5. ATORVASTATIN [Concomitant]
     Indication: DRUG USE FOR UNKNOWN INDICATION
     Dosage: 40 Milligram
     Route: 048
  6. FLOMAX [Concomitant]
     Indication: DRUG USE FOR UNKNOWN INDICATION
     Dosage: .4 Milligram
     Route: 048
  7. NITRO-SPRAY [Concomitant]
     Indication: DRUG USE FOR UNKNOWN INDICATION
     Dosage: .4 Milligram
     Route: 065
  8. OMEPRAZOLE [Concomitant]
     Indication: DRUG USE FOR UNKNOWN INDICATION
     Dosage: 20 Milligram
     Route: 065
  9. ASA [Concomitant]
     Indication: DRUG USE FOR UNKNOWN INDICATION
     Dosage: 81 Milligram
     Route: 048
  10. TRAMADOL [Concomitant]
     Indication: DRUG USE FOR UNKNOWN INDICATION
     Route: 065
  11. BISOPROLOL [Concomitant]
     Indication: DRUG USE FOR UNKNOWN INDICATION
     Route: 048
  12. RITUXIMAB [Concomitant]
     Indication: RHEUMATOID ARTHRITIS
     Route: 065
  13. RABEPRAZOLE [Concomitant]
     Indication: GERD
     Dosage: 20 Milligram
     Route: 048
     Dates: start: 20120420, end: 20120503
  14. DILAUDID [Concomitant]
     Indication: CHEST PAIN
     Dosage: 1-4 MG
     Route: 058
     Dates: start: 20120419, end: 20120503
  15. DILAUDID [Concomitant]
     Dosage: 2 Milligram
     Route: 048
     Dates: start: 20120419
  16. ACETAMINOPHEN [Concomitant]
     Indication: PNEUMONIA
     Dosage: 325mg-975mg
     Route: 048
     Dates: start: 20120412
  17. GRAVOL [Concomitant]
     Indication: NAUSEA
     Dosage: 50 Milligram
     Route: 048
     Dates: start: 20120412
  18. OXAZEPAM [Concomitant]
     Indication: SLEEP DISORDER
     Dosage: 15-30 MG
     Route: 048
     Dates: start: 20120419, end: 20120419
  19. OXAZEPAM [Concomitant]
     Indication: PROPHYLAXIS
  20. POTASSIUM CHLORIDE [Concomitant]
     Indication: HYPOKALEMIA
     Dosage: 8 Milliequivalents
     Route: 048
     Dates: start: 20120424, end: 20120426
  21. MAGIC MOUTHWASH [Concomitant]
     Indication: MUCOSITIS
     Dosage: 4 milliliter
     Route: 048
     Dates: start: 20120424
  22. CYTARABINE [Concomitant]
     Indication: CHEMOTHERAPY
     Dosage: 40 Milligram
     Route: 058
     Dates: start: 20120427, end: 20120506
  23. LASIX [Concomitant]
     Indication: PROPHYLAXIS
     Dosage: 20 Milligram
     Route: 041
     Dates: start: 20120428

REACTIONS (1)
  - Organising pneumonia [Not Recovered/Not Resolved]
